FAERS Safety Report 9434851 (Version 2)
Quarter: 2013Q3

REPORT INFORMATION
  Report Type: Spontaneous
  Country: US (occurrence: US)
  Receive Date: 20130801
  Receipt Date: 20130807
  Transmission Date: 20140515
  Serious: Yes (Hospitalization, Disabling)
  Sender: FDA-Public Use
  Company Number: US-RANBAXY-2013US-71777

PATIENT
  Age: 57 Year
  Sex: Female

DRUGS (6)
  1. CLINDAMYCIN [Suspect]
     Indication: TOOTH INFECTION
     Dosage: 150 MG (2X/ DAY)
     Route: 065
     Dates: start: 20120615
  2. CLINDAMYCIN [Suspect]
     Indication: ENDODONTIC PROCEDURE
     Dosage: 300 MG, DAILY
     Route: 048
     Dates: start: 20120521
  3. VANCOMYCIN [Suspect]
     Indication: CLOSTRIDIUM DIFFICILE INFECTION
     Dosage: UNK
     Route: 065
     Dates: start: 2012
  4. FLAGYL [Suspect]
     Indication: PRODUCT USED FOR UNKNOWN INDICATION
     Dosage: 500MG (2X/DAY)
     Route: 065
     Dates: start: 20120713
  5. DIFICID [Suspect]
     Indication: PRODUCT USED FOR UNKNOWN INDICATION
     Route: 065
  6. CLONAZEPAM [Concomitant]
     Indication: ANXIETY
     Dosage: 0.05MG, DAILY
     Route: 065

REACTIONS (21)
  - Local swelling [Unknown]
  - Diarrhoea [Not Recovered/Not Resolved]
  - Nausea [Unknown]
  - Vomiting [Unknown]
  - Discomfort [Unknown]
  - Weight decreased [Unknown]
  - Oedema peripheral [Unknown]
  - Hepatic function abnormal [Unknown]
  - Disability [Unknown]
  - Clostridium difficile infection [Unknown]
  - Erythema [Unknown]
  - Malaise [Unknown]
  - Neuropathy peripheral [Unknown]
  - Aphagia [Unknown]
  - Blepharitis [Unknown]
  - Suicidal ideation [Unknown]
  - Depression [Unknown]
  - Nightmare [Unknown]
  - Pyrexia [Unknown]
  - Hepatic enzyme increased [Unknown]
  - Rosacea [Unknown]
